FAERS Safety Report 9434243 (Version 2)
Quarter: 2014Q1

REPORT INFORMATION
  Report Type: Spontaneous
  Country: RO (occurrence: RO)
  Receive Date: 20130801
  Receipt Date: 20140222
  Transmission Date: 20141002
  Serious: Yes (Other)
  Sender: FDA-Public Use
  Company Number: PHHY2013RO079326

PATIENT
  Age: 29 Year
  Sex: Female

DRUGS (2)
  1. CARBAMAZEPINE [Suspect]
     Indication: PARTIAL SEIZURES
     Dosage: 0.4 G, PER DAY
  2. PHENOBARBITAL [Interacting]
     Indication: PARTIAL SEIZURES
     Dosage: 0.1 G, PER DAY

REACTIONS (4)
  - Stillbirth [Unknown]
  - Oligohydramnios [Unknown]
  - Drug interaction [Unknown]
  - Maternal exposure during pregnancy [Unknown]
